FAERS Safety Report 10362505 (Version 1)
Quarter: 2014Q1

REPORT INFORMATION
  Report Type: Spontaneous
  Country: US (occurrence: None)
  Receive Date: 20140306
  Receipt Date: 20140306
  Transmission Date: 20141002
  Serious: Yes (Other)
  Sender: FDA-Public Use
  Company Number: 163-21880-13051445

PATIENT
  Sex: Female

DRUGS (11)
  1. REVLIMID [Suspect]
     Indication: PLASMA CELL MYELOMA
     Route: 048
     Dates: start: 20100409
  2. ASPIRIN (ACETYLSALICYLIC ACID) (81 MILLIGRAM, ENTERIC-COATED TABLET) [Concomitant]
  3. BENICLAR (OLMESARTAN MEDOXOMIL) (20 MILLIGRAM, TABLETS) [Concomitant]
  4. CALTRATE-600 PLUS [Concomitant]
  5. CARVEDILOL [Concomitant]
  6. CENTRUM SILVER [Concomitant]
  7. DEXAMETHASONE (DEXAMETHASONE) (UNKNOWN) [Concomitant]
  8. LANTUS [Concomitant]
  9. METFORMIN HCL (METFORMIN HYDROCHLORIDE) (UNKNOWN) [Concomitant]
  10. NIFEDICAL XL (NIFEDIPINE) (30 MILLIGRAM, TABLETS) [Concomitant]
  11. SIMVASTATIN (SIMVASTATIN) (5 MILLIGRAM, TABLETS) [Concomitant]

REACTIONS (1)
  - Cataract [None]
